FAERS Safety Report 4354118-2 (Version None)
Quarter: 2004Q2

REPORT INFORMATION
  Report Type: 
  Country: None (occurrence: None)
  Receive Date: 20040430
  Receipt Date: 20040414
  Transmission Date: 20050107
  Serious: Yes (Death)
  Sender: FDA-Public Use
  Company Number: 2004-DE-02046BY

PATIENT
  Sex: Male

DRUGS (3)
  1. MICARDIS HCT [Suspect]
     Indication: HYPERTENSION
     Dosage: 80 MG PO
     Route: 048
     Dates: start: 20030523
  2. FUROSEMIDE [Concomitant]
  3. SPIRONOLACTON PLUS [Concomitant]

REACTIONS (4)
  - CARDIAC ARREST [None]
  - LARYNGEAL NEOPLASM [None]
  - LEFT VENTRICULAR FAILURE [None]
  - REFUSAL OF TREATMENT BY PATIENT [None]
